FAERS Safety Report 7425333-6 (Version None)
Quarter: 2011Q2

REPORT INFORMATION
  Report Type: 
  Country: None (occurrence: None)
  Receive Date: 20110420
  Receipt Date: 20110408
  Transmission Date: 20111010
  Serious: No
  Sender: FDA-Public Use
  Company Number: PHHY2009CA16878

PATIENT
  Sex: Male

DRUGS (8)
  1. ASPIRIN [Concomitant]
     Dosage: 1 DF, QD
     Route: 048
  2. EXJADE [Suspect]
     Indication: MYELODYSPLASTIC SYNDROME
     Dosage: 1500 MG, QD
     Route: 048
     Dates: start: 20090115, end: 20090419
  3. EXJADE [Suspect]
     Indication: IRON OVERLOAD
     Dosage: 4 DF, QD
     Route: 048
  4. EXJADE [Suspect]
     Dosage: 3 DF, QD
     Route: 048
  5. PANTOPRAZOLE [Concomitant]
     Dosage: 40 MG, QD
     Route: 048
  6. HYDROXYUREA [Concomitant]
     Dosage: 500 MG, QD
     Route: 048
  7. EPREX [Concomitant]
     Dosage: 60000 IU , ONE INJECTION WEEKLY
  8. VIDAZA [Suspect]
     Indication: BLOOD DISORDER
     Dosage: 1 INJECTION  7 X WEEK

REACTIONS (6)
  - ABDOMINAL DISCOMFORT [None]
  - SERUM FERRITIN INCREASED [None]
  - DYSGEUSIA [None]
  - ABDOMINAL PAIN [None]
  - ABDOMINAL PAIN UPPER [None]
  - DRUG INTOLERANCE [None]
